FAERS Safety Report 16453389 (Version 3)
Quarter: 2020Q4

REPORT INFORMATION
  Report Type: Report from Study
  Country: CO (occurrence: CO)
  Receive Date: 20190619
  Receipt Date: 20201030
  Transmission Date: 20210113
  Serious: Yes (Death, Hospitalization)
  Sender: FDA-Public Use
  Company Number: CO-BAYER-2019-116711

PATIENT
  Age: 76 Year
  Sex: Female

DRUGS (1)
  1. ADEMPAS [Suspect]
     Active Substance: RIOCIGUAT
     Indication: PULMONARY ARTERIAL HYPERTENSION
     Dosage: 1 MG, BID (EVERY 12 HOURS)
     Route: 048
     Dates: start: 20190429, end: 20190915

REACTIONS (3)
  - Hospitalisation [None]
  - Respiratory arrest [Fatal]
  - Drug dose titration not performed [None]

NARRATIVE: CASE EVENT DATE: 2019
